FAERS Safety Report 9937416 (Version 2)
Quarter: 2014Q1

REPORT INFORMATION
  Report Type: Spontaneous
  Country: JP (occurrence: JP)
  Receive Date: 20140303
  Receipt Date: 20140310
  Transmission Date: 20141002
  Serious: No
  Sender: FDA-Public Use
  Company Number: JP-ORION CORPORATION ORION PHARMA-ENT 2014-0035

PATIENT
  Age: 77 Year
  Sex: Female

DRUGS (4)
  1. COMTAN [Suspect]
     Indication: PARKINSON^S DISEASE
     Dosage: STRENGTH: 100 MG
     Route: 048
  2. LEVODOPA [Concomitant]
     Indication: PARKINSON^S DISEASE
     Route: 065
  3. MIRAPEX LA [Concomitant]
     Route: 065
  4. ANAFRANIL [Concomitant]
     Route: 065

REACTIONS (1)
  - Urinary tract infection [Recovered/Resolved]
